FAERS Safety Report 4559080-5 (Version None)
Quarter: 2005Q1

REPORT INFORMATION
  Report Type: 
  Country: None (occurrence: None)
  Receive Date: 20050121
  Receipt Date: 20050121
  Transmission Date: 20050727
  Serious: No
  Sender: FDA-Public Use
  Company Number: None

PATIENT
  Sex: Male

DRUGS (6)
  1. WARFARIN SODIUM [Suspect]
     Indication: HEART VALVE REPLACEMENT
  2. CRANBERRY [Suspect]
  3. CO-DYDRAMOL [Concomitant]
  4. AMLODIPINE [Concomitant]
  5. ENALAPRIL MALEATE [Concomitant]
  6. LOSARTAN [Concomitant]

REACTIONS (2)
  - EPISTAXIS [None]
  - VASCULAR INJURY [None]
